FAERS Safety Report 14993871 (Version 1)
Quarter: 2018Q2

REPORT INFORMATION
  Report Type: Spontaneous
  Country: GB (occurrence: GB)
  Receive Date: 20180611
  Receipt Date: 20180611
  Transmission Date: 20180711
  Serious: Yes (Other)
  Sender: FDA-Public Use
  Company Number: GB-TEVA-2018-GB-904756

PATIENT
  Age: 61 Year
  Sex: Male
  Weight: 74.38 kg

DRUGS (8)
  1. THIAMINE. [Concomitant]
     Active Substance: THIAMINE
  2. COLECALCIFEROL [Concomitant]
     Active Substance: CHOLECALCIFEROL
  3. INSULIN GLARGINE [Concomitant]
     Active Substance: INSULIN GLARGINE
  4. ASCORBIC ACID. [Concomitant]
     Active Substance: ASCORBIC ACID
  5. NOVORAPID [Concomitant]
     Active Substance: INSULIN ASPART
  6. NAPROXEN. [Suspect]
     Active Substance: NAPROXEN
     Indication: PHLEBITIS
     Dosage: 1000 MILLIGRAM DAILY;
     Route: 048
     Dates: start: 20180322, end: 20180405
  7. THIOCTIC ACID [Concomitant]
     Active Substance: THIOCTIC ACID
  8. FENOFIBRATE. [Concomitant]
     Active Substance: FENOFIBRATE

REACTIONS (6)
  - Confusional state [Recovered/Resolved]
  - Dizziness [Recovered/Resolved]
  - Pruritus [Recovering/Resolving]
  - Sleep apnoea syndrome [Recovering/Resolving]
  - Hypertension [Recovering/Resolving]
  - Vision blurred [Recovering/Resolving]

NARRATIVE: CASE EVENT DATE: 20180401
